FAERS Safety Report 9737790 (Version 2)
Quarter: 2013Q4

REPORT INFORMATION
  Report Type: Spontaneous
  Country: US (occurrence: US)
  Receive Date: 20131208
  Receipt Date: 20131208
  Transmission Date: 20140711
  Serious: No
  Sender: FDA-Public Use
  Company Number: -SAAVPROD-RENA-1001894

PATIENT
  Sex: Female

DRUGS (1)
  1. SEVELAMER CARBONATE [Suspect]
     Indication: PRODUCT USED FOR UNKNOWN INDICATION
     Dosage: 4.8 G (6 TABLETS), QD
     Route: 048

REACTIONS (3)
  - Haemorrhoids [Unknown]
  - Gastrointestinal disorder [Unknown]
  - Constipation [Unknown]
